FAERS Safety Report 23517345 (Version 3)
Quarter: 2024Q1

REPORT INFORMATION
  Report Type: Spontaneous
  Country: JP (occurrence: JP)
  Receive Date: 20240213
  Receipt Date: 20240329
  Transmission Date: 20240409
  Serious: Yes (Death, Hospitalization, Other)
  Sender: FDA-Public Use
  Company Number: JP-ONO-2024JP002864

PATIENT
  Age: 60 Year
  Sex: Male
  Weight: 43.5 kg

DRUGS (7)
  1. OPDIVO [Suspect]
     Active Substance: NIVOLUMAB
     Indication: Non-small cell lung cancer recurrent
     Dosage: 240 MG, AROUND Q3W
     Route: 041
     Dates: start: 20230823, end: 20240111
  2. PREDONINE [Concomitant]
     Active Substance: PREDNISOLONE
     Indication: Product used for unknown indication
     Route: 048
     Dates: end: 20240130
  3. FAMOTIDINE [Concomitant]
     Active Substance: FAMOTIDINE
     Indication: Product used for unknown indication
     Route: 048
     Dates: end: 20240130
  4. PREGABALIN [Concomitant]
     Active Substance: PREGABALIN
     Indication: Product used for unknown indication
     Dosage: Q12H
     Route: 048
     Dates: end: 20240130
  5. ELIQUIS [Concomitant]
     Active Substance: APIXABAN
     Indication: Product used for unknown indication
     Dosage: Q12H
     Route: 048
     Dates: end: 20240130
  6. NAPROXEN [Concomitant]
     Active Substance: NAPROXEN
     Indication: Product used for unknown indication
     Dosage: Q12H
     Route: 048
     Dates: end: 20240130
  7. MIYA-BM [Concomitant]
     Active Substance: CLOSTRIDIUM BUTYRICUM SPORES STRAIN M-55
     Indication: Product used for unknown indication
     Dosage: Q8H
     Route: 048
     Dates: end: 20240130

REACTIONS (16)
  - Cytokine release syndrome [Fatal]
  - Pulmonary alveolar haemorrhage [Unknown]
  - Lung opacity [Unknown]
  - Blood creatine phosphokinase increased [Fatal]
  - Lung disorder [Unknown]
  - Lung infiltration [Unknown]
  - Haemoptysis [Unknown]
  - Immune-mediated myasthenia gravis [Fatal]
  - Dyspnoea exertional [Unknown]
  - Movement disorder [Unknown]
  - Malaise [Unknown]
  - Respiratory paralysis [Unknown]
  - Pyrexia [Recovered/Resolved]
  - Dysphonia [Unknown]
  - Off label use [Unknown]
  - Immune-mediated myositis [Fatal]

NARRATIVE: CASE EVENT DATE: 20230823
